FAERS Safety Report 17762592 (Version 6)
Quarter: 2021Q3

REPORT INFORMATION
  Report Type: Spontaneous
  Country: DE (occurrence: DE)
  Receive Date: 20200508
  Receipt Date: 20210922
  Transmission Date: 20211014
  Serious: Yes (Death, Hospitalization, Disabling, Other)
  Sender: FDA-Public Use
  Company Number: DE-GILEAD-2020-0465241

PATIENT
  Sex: Male
  Weight: 78 kg

DRUGS (3)
  1. IMMUNOGLOBULINS NOS [Concomitant]
     Active Substance: IMMUNE GLOBULIN NOS
  2. INTRATECT [Suspect]
     Active Substance: HUMAN IMMUNOGLOBULIN G
     Indication: PRODUCT USED FOR UNKNOWN INDICATION
     Dosage: UNK
     Route: 042
     Dates: start: 20200310
  3. YESCARTA [Suspect]
     Active Substance: AXICABTAGENE CILOLEUCEL
     Indication: DIFFUSE LARGE B-CELL LYMPHOMA
     Dosage: UNK
     Route: 065
     Dates: start: 20190805, end: 20190805

REACTIONS (32)
  - Arthralgia [Recovering/Resolving]
  - Dizziness [Unknown]
  - Aggression [Not Recovered/Not Resolved]
  - Depression [Not Recovered/Not Resolved]
  - Encephalitis autoimmune [Fatal]
  - Pancytopenia [Unknown]
  - Vision blurred [Unknown]
  - Thrombophlebitis [Unknown]
  - Urinary tract infection [Unknown]
  - Bacteraemia [Unknown]
  - Systemic candida [Unknown]
  - Panic attack [Not Recovered/Not Resolved]
  - Enterococcus test positive [Unknown]
  - Posterior reversible encephalopathy syndrome [Unknown]
  - Suicidal ideation [Not Recovered/Not Resolved]
  - Chest pain [Recovering/Resolving]
  - Cytopenia [Unknown]
  - Blindness [Not Recovered/Not Resolved]
  - Nasopharyngitis [Recovering/Resolving]
  - Fatigue [Unknown]
  - Muscle disorder [Not Recovered/Not Resolved]
  - Gastric disorder [Unknown]
  - Iron deficiency [Unknown]
  - Hypoacusis [Not Recovered/Not Resolved]
  - Cerebral disorder [Fatal]
  - Ataxia [Not Recovered/Not Resolved]
  - Dyskinesia [Not Recovered/Not Resolved]
  - Erectile dysfunction [Unknown]
  - General physical health deterioration [Not Recovered/Not Resolved]
  - Anxiety disorder [Not Recovered/Not Resolved]
  - Phobia [Not Recovered/Not Resolved]
  - Gait inability [Not Recovered/Not Resolved]

NARRATIVE: CASE EVENT DATE: 2020
